FAERS Safety Report 7553113-X (Version None)
Quarter: 2011Q2

REPORT INFORMATION
  Report Type: 
  Country: None (occurrence: None)
  Receive Date: 20110616
  Receipt Date: 20110603
  Transmission Date: 20111010
  Serious: Yes (Hospitalization, Congenital Anomaly, Other)
  Sender: FDA-Public Use
  Company Number: DE-MYLANLABS-2011S1011424

PATIENT
  Sex: Male
  Weight: 2.5 kg

DRUGS (3)
  1. FOLIO [Concomitant]
     Indication: PRODUCT USED FOR UNKNOWN INDICATION
     Dosage: 0.4 [MG/D ]
     Route: 064
  2. DOXEPIN [Suspect]
     Dosage: 125 [MG/D ]
     Route: 064
     Dates: start: 20100429, end: 20110112
  3. FLUOXETINE HCL [Suspect]
     Dosage: 60 [MG/D ]
     Route: 064
     Dates: start: 20100429, end: 20110112

REACTIONS (5)
  - MATERNAL DRUGS AFFECTING FOETUS [None]
  - PREMATURE BABY [None]
  - DRUG WITHDRAWAL SYNDROME NEONATAL [None]
  - HAEMANGIOMA CONGENITAL [None]
  - DRUG EXPOSURE DURING PREGNANCY [None]
